FAERS Safety Report 7759195-4 (Version None)
Quarter: 2011Q3

REPORT INFORMATION
  Report Type: 
  Country: None (occurrence: None)
  Receive Date: 20110915
  Receipt Date: 20110908
  Transmission Date: 20111222
  Serious: Yes (Other)
  Sender: FDA-Public Use
  Company Number: ACO_26474_2011

PATIENT
  Age: 36 Year
  Sex: Female
  Weight: 63.5 kg

DRUGS (5)
  1. AMPYRA [Suspect]
     Indication: MULTIPLE SCLEROSIS
     Dosage: 10 MG, BID, ORAL
     Route: 048
     Dates: start: 20110805, end: 20110824
  2. BUSPAR [Concomitant]
  3. BETASERON [Concomitant]
  4. SOLU-MEDROL (METHYLPREDNISOLONGE SODIUM SUCCINATE) [Concomitant]
  5. BACLOFEN [Concomitant]

REACTIONS (8)
  - CONVULSION [None]
  - CONTUSION [None]
  - TRANCE [None]
  - DRUG INEFFECTIVE [None]
  - FEELING ABNORMAL [None]
  - LIP HAEMORRHAGE [None]
  - CONFUSIONAL STATE [None]
  - FALL [None]
